FAERS Safety Report 12413644 (Version 3)
Quarter: 2016Q3

REPORT INFORMATION
  Report Type: Spontaneous
  Country: US (occurrence: US)
  Receive Date: 20160527
  Receipt Date: 20160706
  Transmission Date: 20161109
  Serious: No
  Sender: FDA-Public Use
  Company Number: US-ACTELION-A-US2016-136868

PATIENT
  Age: 75 Year
  Sex: Male

DRUGS (11)
  1. FINASTERIDE. [Concomitant]
     Active Substance: FINASTERIDE
  2. ANACIN-3 [Concomitant]
     Dosage: UNK
  3. VALCHLOR [Suspect]
     Active Substance: MECHLORETHAMINE
     Indication: MYCOSIS FUNGOIDES
     Dosage: UNK
     Route: 061
     Dates: start: 20160516, end: 20160524
  4. DOXYCYCLINE. [Concomitant]
     Active Substance: DOXYCYCLINE
  5. ENALAPRIL [Concomitant]
     Active Substance: ENALAPRIL
  6. SIMVASTATIN. [Concomitant]
     Active Substance: SIMVASTATIN
  7. LATANOPROST. [Concomitant]
     Active Substance: LATANOPROST
  8. CENTRUM SILVER [Concomitant]
     Active Substance: MINERALS\VITAMINS
     Dosage: UNK
  9. FLUOROURACIL. [Concomitant]
     Active Substance: FLUOROURACIL
  10. ECOTRIN [Concomitant]
     Active Substance: ASPIRIN
     Dosage: UNK
  11. CLOBETASOL [Concomitant]
     Active Substance: CLOBETASOL

REACTIONS (7)
  - Application site swelling [Recovering/Resolving]
  - Application site vesicles [Recovering/Resolving]
  - Application site scab [Not Recovered/Not Resolved]
  - Application site pruritus [Recovering/Resolving]
  - Application site discharge [Not Recovered/Not Resolved]
  - Burning sensation [Recovering/Resolving]
  - Application site erythema [Recovering/Resolving]

NARRATIVE: CASE EVENT DATE: 20160524
